FAERS Safety Report 6746044-6 (Version None)
Quarter: 2010Q2

REPORT INFORMATION
  Report Type: 
  Country: None (occurrence: None)
  Receive Date: 20100528
  Receipt Date: 20100514
  Transmission Date: 20101027
  Serious: Yes (Death, Other)
  Sender: FDA-Public Use
  Company Number: US-ELI_LILLY_AND_COMPANY-US201003004848

PATIENT
  Sex: Female

DRUGS (14)
  1. FORTEO [Suspect]
     Indication: OSTEOPOROSIS
     Dosage: 20 UG, DAILY (1/D)
     Dates: start: 20100211
  2. FORTEO [Suspect]
     Dosage: 20 UG, QOD
     Dates: start: 20100101, end: 20100101
  3. FORTEO [Suspect]
     Dosage: 20 UG, DAILY (1/D)
     Dates: start: 20100101, end: 20100101
  4. MORPHINE SULFATE [Concomitant]
     Dosage: UNK, 3/D
  5. COUMADIN [Concomitant]
  6. SYNTHROID [Concomitant]
  7. METOPROLOL TARTRATE [Concomitant]
  8. VITAMIN D [Concomitant]
  9. CALCIUM CARBONATE [Concomitant]
  10. IRON [Concomitant]
  11. PREVACID [Concomitant]
  12. PRILOSEC [Concomitant]
  13. VALIUM [Concomitant]
  14. ENSURE /06184901/ [Concomitant]
     Dosage: UNK, 2/D

REACTIONS (15)
  - ARTHRALGIA [None]
  - CARDIAC FAILURE CONGESTIVE [None]
  - DEATH [None]
  - DECREASED APPETITE [None]
  - DRUG PRESCRIBING ERROR [None]
  - DYSSTASIA [None]
  - GAIT DISTURBANCE [None]
  - INSOMNIA [None]
  - JOINT SWELLING [None]
  - OXYGEN SATURATION DECREASED [None]
  - PAIN [None]
  - PAIN IN EXTREMITY [None]
  - READING DISORDER [None]
  - SOMNOLENCE [None]
  - WEIGHT DECREASED [None]
